FAERS Safety Report 7388086-6 (Version None)
Quarter: 2011Q1

REPORT INFORMATION
  Report Type: 
  Country: None (occurrence: None)
  Receive Date: 20110324
  Receipt Date: 20100805
  Transmission Date: 20110831
  Serious: Yes (Life-Threatening, Hospitalization, Other)
  Sender: FDA-Public Use
  Company Number: BR-001247

PATIENT
  Sex: Male

DRUGS (1)
  1. NAGLAZYME [Suspect]
     Indication: MUCOPOLYSACCHARIDOSIS VI
     Dosage: 25 MG, 1/X WEEK, INTRAVENOUS DRIP
     Route: 041
     Dates: start: 20050725

REACTIONS (2)
  - RESPIRATORY TRACT INFECTION [None]
  - DYSPNOEA [None]
